FAERS Safety Report 4518810-9 (Version None)
Quarter: 2004Q4

REPORT INFORMATION
  Report Type: 
  Country: None (occurrence: None)
  Receive Date: 20041104
  Receipt Date: 20040722
  Transmission Date: 20050328
  Serious: Yes (Other)
  Sender: FDA-Public Use
  Company Number: PHEH2004US08049

PATIENT
  Sex: Female

DRUGS (6)
  1. ESTRADIOL [Suspect]
     Indication: HORMONE REPLACEMENT THERAPY
  2. ESTROGEN(ESTROGENS) [Suspect]
     Indication: HORMONE REPLACEMENT THERAPY
  3. OGEN [Suspect]
  4. PROVERA [Suspect]
  5. MEDROXYPROGESTERONE ACETATE [Suspect]
  6. ESTROPIPATE [Suspect]

REACTIONS (1)
  - BREAST CANCER [None]
